FAERS Safety Report 5678590-0 (Version None)
Quarter: 2008Q1

REPORT INFORMATION
  Report Type: 
  Country: None (occurrence: None)
  Receive Date: 20080325
  Receipt Date: 20080313
  Transmission Date: 20080703
  Serious: Yes (Other)
  Sender: FDA-Public Use
  Company Number: US-ROCHE-553222

PATIENT
  Sex: Female

DRUGS (6)
  1. PEGASYS [Suspect]
     Dosage: FORM: PRE-FILLED SYRINGE, RECEIVED TWO INJECTIONS THE SAME DAY.
     Route: 065
     Dates: start: 20080125
  2. PEGASYS [Suspect]
     Route: 065
     Dates: start: 20060101, end: 20061001
  3. COPEGUS [Suspect]
     Route: 065
     Dates: start: 20060101, end: 20061001
  4. RIBAVIRIN [Suspect]
     Route: 065
     Dates: start: 20030101, end: 20040301
  5. PEG-INTRON [Suspect]
     Route: 065
     Dates: start: 20030101, end: 20040301
  6. RIBASPHERE [Concomitant]
     Dates: start: 20080125

REACTIONS (3)
  - CONVULSION [None]
  - DEPRESSION [None]
  - EMOTIONAL DISORDER [None]
